FAERS Safety Report 10006282 (Version 1)
Quarter: 2014Q1

REPORT INFORMATION
  Report Type: Spontaneous
  Country: US (occurrence: US)
  Receive Date: 20140313
  Receipt Date: 20140313
  Transmission Date: 20141002
  Serious: Yes (Other)
  Sender: FDA-Public Use
  Company Number: US-BAYER-2014-037189

PATIENT
  Age: 50 Year
  Sex: Female

DRUGS (7)
  1. OCELLA [Suspect]
     Indication: CONTRACEPTION
     Dosage: UNK
  2. YASMIN [Suspect]
     Indication: CONTRACEPTION
     Dosage: UNK
  3. FLUCONAZOLE [Concomitant]
     Indication: FUNGAL INFECTION
     Dosage: 150 MG, ONE TABLET
     Route: 048
  4. SYNTHROID [Concomitant]
     Dosage: 0.125 MG, UNK
     Route: 048
  5. ATENOLOL [Concomitant]
     Dosage: 50 MG TK ? T BID
     Route: 048
  6. SIMVASTATIN [Concomitant]
  7. TRICOR [Concomitant]

REACTIONS (1)
  - Deep vein thrombosis [None]
